FAERS Safety Report 10634727 (Version 2)
Quarter: 2014Q4

REPORT INFORMATION
  Report Type: Report from Study
  Country: US (occurrence: US)
  Receive Date: 20141205
  Receipt Date: 20141205
  Transmission Date: 20150529
  Serious: Yes (Congenital Anomaly, Other)
  Sender: FDA-Public Use
  Company Number: US-ABBVIE-07P-163-0419528-00

PATIENT
  Age: 1 Day
  Sex: Male
  Weight: 3.49 kg

DRUGS (1)
  1. HUMIRA [Suspect]
     Active Substance: ADALIMUMAB
     Indication: MATERNAL EXPOSURE TIMING UNSPECIFIED
     Route: 064

REACTIONS (8)
  - Respiratory disorder [Unknown]
  - Inguinal hernia [Unknown]
  - Foetal exposure during pregnancy [Unknown]
  - Cryptorchism [Unknown]
  - Umbilical cord around neck [Unknown]
  - Transient tachypnoea of the newborn [Unknown]
  - Neonatal aspiration [Unknown]
  - Anaemia [Unknown]

NARRATIVE: CASE EVENT DATE: 20080425
